FAERS Safety Report 10450598 (Version 4)
Quarter: 2018Q3

REPORT INFORMATION
  Report Type: Report from Study
  Country: JP (occurrence: JP)
  Receive Date: 20140912
  Receipt Date: 20180820
  Transmission Date: 20181010
  Serious: Yes (Other)
  Sender: FDA-Public Use
  Company Number: PHHY2010JP67384

PATIENT
  Age: 47 Year
  Sex: Female

DRUGS (4)
  1. TASIGNA [Suspect]
     Active Substance: NILOTINIB
     Indication: CHRONIC MYELOID LEUKAEMIA
     Dosage: 400 MG, BID
     Route: 048
     Dates: start: 20100424
  2. LASIX [Concomitant]
     Active Substance: FUROSEMIDE
     Indication: OEDEMA
     Dosage: 40 MG, UNK
     Route: 048
     Dates: start: 20100424
  3. ALDACTONE [Concomitant]
     Active Substance: SPIRONOLACTONE
     Indication: OEDEMA
     Dosage: 50 MG, UNK
     Route: 048
     Dates: start: 20100424, end: 20100604
  4. ACINON [Concomitant]
     Active Substance: NIZATIDINE
     Indication: PRODUCT USED FOR UNKNOWN INDICATION
     Dosage: 300 MG, UNK
     Route: 048
     Dates: start: 20100424

REACTIONS (12)
  - Pneumonia [Recovered/Resolved]
  - Blood bilirubin unconjugated increased [Recovering/Resolving]
  - White blood cell count increased [Recovering/Resolving]
  - Dacryocystitis [Recovered/Resolved]
  - Blood phosphorus decreased [Recovered/Resolved]
  - Rash papular [Recovered/Resolved]
  - Rash generalised [Recovered/Resolved]
  - Pleural effusion [Unknown]
  - Rash papular [Recovered/Resolved]
  - Blood bilirubin increased [Unknown]
  - Rash [Recovered/Resolved]
  - Upper respiratory tract inflammation [Recovering/Resolving]

NARRATIVE: CASE EVENT DATE: 20100430
